FAERS Safety Report 23520796 (Version 5)
Quarter: 2024Q1

REPORT INFORMATION
  Report Type: Report from Study
  Country: AU (occurrence: AU)
  Receive Date: 20240214
  Receipt Date: 20240324
  Transmission Date: 20240409
  Serious: Yes (Hospitalization, Other)
  Sender: FDA-Public Use
  Company Number: AU-ABBVIE-5630852

PATIENT
  Sex: Male
  Weight: 96 kg

DRUGS (12)
  1. CARBIDOPA\LEVODOPA [Suspect]
     Active Substance: CARBIDOPA\LEVODOPA
     Indication: Parkinson^s disease
     Dosage: MD10MLS ;CR 8.5ML/HR ;ED3ML ;BOLUS MD10MLS; CR8.5ML/HR ;ED3ML BOLUS?LAST ADMIN DATE:2024
     Route: 050
     Dates: start: 20240130
  2. CARBIDOPA\LEVODOPA [Suspect]
     Active Substance: CARBIDOPA\LEVODOPA
     Dosage: LAST ADMIN DATE-  JAN 2024
     Route: 050
     Dates: start: 20240129
  3. CARBIDOPA\LEVODOPA [Suspect]
     Active Substance: CARBIDOPA\LEVODOPA
     Route: 050
     Dates: start: 20240205
  4. MIRABEGRON [Concomitant]
     Active Substance: MIRABEGRON
     Indication: Product used for unknown indication
     Route: 048
  5. PANTOPRAZOLE [Concomitant]
     Active Substance: PANTOPRAZOLE
     Indication: Product used for unknown indication
     Route: 048
  6. ACETAMINOPHEN [Concomitant]
     Active Substance: ACETAMINOPHEN
     Indication: Product used for unknown indication
     Dosage: TIME INTERVAL: 0.33333333 DAYS
     Route: 048
  7. BENSERAZIDE HYDROCHLORIDE\LEVODOPA [Concomitant]
     Active Substance: BENSERAZIDE HYDROCHLORIDE\LEVODOPA
     Indication: Parkinson^s disease
     Dosage: TIME INTERVAL: 0.33333333 DAYS: 200/50
     Route: 048
  8. LYRICA [Concomitant]
     Active Substance: PREGABALIN
     Indication: Product used for unknown indication
     Route: 048
  9. FUROSEMIDE [Concomitant]
     Active Substance: FUROSEMIDE
     Indication: Product used for unknown indication
     Route: 048
     Dates: end: 20240210
  10. APOMORPHINE [Concomitant]
     Active Substance: APOMORPHINE
     Indication: Parkinson^s disease
     Dosage: 100MG/20MLS?FREQUENCY TEXT: 24HRS INFUSION
     Route: 058
     Dates: end: 20240130
  11. TOPIRAMATE [Concomitant]
     Active Substance: TOPIRAMATE
     Indication: Migraine
  12. DUTASTERIDE EG [Concomitant]
     Indication: Product used for unknown indication
     Dosage: FREQUENCY TEXT: AT NIGHT
     Route: 048

REACTIONS (13)
  - Pain [Recovered/Resolved]
  - Hepatic haematoma [Recovered/Resolved]
  - Device kink [Unknown]
  - Therapeutic product effect decreased [Unknown]
  - Pneumoperitoneum [Recovered/Resolved]
  - Abdominal distension [Recovered/Resolved]
  - Respiratory arrest [Unknown]
  - Device dislocation [Unknown]
  - Abdominal pain [Unknown]
  - Respiratory failure [Unknown]
  - Abdominal distension [Unknown]
  - Parkinson^s disease [Unknown]
  - Pneumonia [Unknown]

NARRATIVE: CASE EVENT DATE: 20240101
